FAERS Safety Report 9068693 (Version 5)
Quarter: 2014Q1

REPORT INFORMATION
  Report Type: Report from Study
  Country: DE (occurrence: DE)
  Receive Date: 20130128
  Receipt Date: 20140115
  Transmission Date: 20141002
  Serious: Yes (Hospitalization)
  Sender: FDA-Public Use
  Company Number: DE-ROCHE-1138338

PATIENT
  Age: 39 Year
  Sex: Female
  Weight: 59 kg

DRUGS (7)
  1. TOCILIZUMAB [Suspect]
     Indication: RHEUMATOID ARTHRITIS
     Dosage: DATE OF LAST DOSE PRIOR TO SAE: 14/AUG/2012
     Route: 042
     Dates: start: 20120619, end: 20120911
  2. TOCILIZUMAB [Suspect]
     Route: 042
     Dates: start: 20120917
  3. TOCILIZUMAB [Suspect]
     Route: 042
     Dates: start: 20120717
  4. TOCILIZUMAB [Suspect]
     Route: 042
     Dates: start: 20120814
  5. METHOTREXATE [Concomitant]
     Route: 048
  6. DICLOFENAC [Concomitant]
     Route: 048
  7. PREDNISOLONE [Concomitant]
     Route: 048

REACTIONS (1)
  - Tonsillitis [Recovered/Resolved]
